FAERS Safety Report 13097459 (Version 1)
Quarter: 2017Q1

REPORT INFORMATION
  Report Type: Spontaneous
  Country: CA (occurrence: CA)
  Receive Date: 20170109
  Receipt Date: 20170109
  Transmission Date: 20170428
  Serious: Yes (Hospitalization)
  Sender: FDA-Public Use
  Company Number: CA-TEVA-724909ACC

PATIENT
  Age: 61 Year
  Sex: Female

DRUGS (1)
  1. CARBAMAZEPINE. [Suspect]
     Active Substance: CARBAMAZEPINE
     Indication: FACIAL SPASM
     Route: 048

REACTIONS (6)
  - Headache [Unknown]
  - Glomerular filtration rate decreased [Unknown]
  - Malaise [Unknown]
  - Body temperature abnormal [Unknown]
  - Hypotension [Unknown]
  - Urticaria [Unknown]
